FAERS Safety Report 19865103 (Version 1)
Quarter: 2021Q3

REPORT INFORMATION
  Report Type: Spontaneous
  Country: JP (occurrence: JP)
  Receive Date: 20210921
  Receipt Date: 20210921
  Transmission Date: 20211014
  Serious: Yes (Other)
  Sender: FDA-Public Use
  Company Number: JP-SAKK-2021SA304907AA

PATIENT

DRUGS (1)
  1. DUPIXENT [Suspect]
     Active Substance: DUPILUMAB
     Indication: PRODUCT USED FOR UNKNOWN INDICATION
     Route: 058

REACTIONS (5)
  - Lung infiltration [Unknown]
  - Inflammation [Unknown]
  - Malaise [Unknown]
  - Chest pain [Unknown]
  - Organising pneumonia [Unknown]

NARRATIVE: CASE EVENT DATE: 2021
